FAERS Safety Report 13087513 (Version 3)
Quarter: 2017Q2

REPORT INFORMATION
  Report Type: Report from Study
  Country: US (occurrence: US)
  Receive Date: 20170105
  Receipt Date: 20170613
  Transmission Date: 20170830
  Serious: Yes (Other)
  Sender: FDA-Public Use
  Company Number: PHEH2016US034058

PATIENT
  Sex: Male

DRUGS (2)
  1. WARFARIN [Suspect]
     Active Substance: WARFARIN
     Indication: PRODUCT USED FOR UNKNOWN INDICATION
     Route: 065
  2. ENTRESTO [Suspect]
     Active Substance: SACUBITRIL\VALSARTAN
     Indication: CARDIAC FAILURE CONGESTIVE
     Dosage: 50 MG, BID
     Route: 048

REACTIONS (10)
  - Limb discomfort [Unknown]
  - Dizziness [Unknown]
  - Hypotension [Unknown]
  - Thrombosis [Unknown]
  - Fall [Unknown]
  - Gait disturbance [Recovering/Resolving]
  - Movement disorder [Unknown]
  - Fatigue [Unknown]
  - Laceration [Unknown]
  - Ear injury [Unknown]
